FAERS Safety Report 26023987 (Version 1)
Quarter: 2025Q4

REPORT INFORMATION
  Report Type: Spontaneous
  Country: EU (occurrence: EU)
  Receive Date: 20251111
  Receipt Date: 20251111
  Transmission Date: 20260117
  Serious: Yes (Hospitalization, Other)
  Sender: LEGACY PHARMACEUTICAL PACKAGING
  Company Number: EU-LEGACY PHARMA INC. SEZC-LGP202510-000313

PATIENT
  Age: 37 Year
  Sex: Male

DRUGS (6)
  1. AZATHIOPRINE [Suspect]
     Active Substance: AZATHIOPRINE
     Indication: Multiple sclerosis
     Dosage: 100 MILLIGRAM, DAILY
     Route: 065
     Dates: start: 1981
  2. AZATHIOPRINE [Suspect]
     Active Substance: AZATHIOPRINE
     Dosage: 150 MILLIGRAM, DAILY
     Route: 065
     Dates: start: 1981
  3. CYCLOPHOSPHAMIDE [Concomitant]
     Active Substance: CYCLOPHOSPHAMIDE
     Indication: Multiple sclerosis
     Dosage: 500 MILLIGRAM, EVERY OTHER MONTH
     Route: 042
     Dates: start: 1986
  4. METHYLPREDNISOLONE [Concomitant]
     Active Substance: METHYLPREDNISOLONE
     Indication: Multiple sclerosis relapse
     Dosage: 1 GRAM, UNK
     Route: 042
     Dates: start: 1982
  5. METHYLPREDNISOLONE [Concomitant]
     Active Substance: METHYLPREDNISOLONE
     Dosage: 1 GRAM, UNK
     Route: 042
     Dates: start: 1985
  6. METHYLPREDNISOLONE [Concomitant]
     Active Substance: METHYLPREDNISOLONE
     Dosage: 1 GRAM, UNK
     Route: 042
     Dates: start: 198806

REACTIONS (11)
  - Haematemesis [Unknown]
  - Portal hypertension [Unknown]
  - Oesophageal varices haemorrhage [Recovered/Resolved]
  - Varices oesophageal [Recovered/Resolved]
  - Hepatosplenomegaly [Unknown]
  - Nodular regenerative hyperplasia [Unknown]
  - Hepatic fibrosis [Unknown]
  - Thrombocytopenia [Unknown]
  - Hepatotoxicity [Unknown]
  - Anaemia [Unknown]
  - Product used for unknown indication [Unknown]

NARRATIVE: CASE EVENT DATE: 19881201
